FAERS Safety Report 9087893 (Version 1)
Quarter: 2013Q1

REPORT INFORMATION
  Report Type: Report from Study
  Country: US (occurrence: US)
  Receive Date: 20130130
  Receipt Date: 20130130
  Transmission Date: 20140127
  Serious: No
  Sender: FDA-Public Use
  Company Number: US-ABBOTT-12P-163-0989036-00

PATIENT
  Age: 69 Year
  Sex: Female

DRUGS (9)
  1. HUMIRA [Suspect]
     Indication: RHEUMATOID ARTHRITIS
     Dates: start: 20120723, end: 20120903
  2. KLONOPIN [Concomitant]
     Indication: SCIATICA
  3. LEVOCETIRIZINE DIHYDROCHLORIDE [Concomitant]
     Indication: HYPERSENSITIVITY
  4. PREMARIN [Concomitant]
     Indication: HYSTERECTOMY
  5. GABAPENTIN [Concomitant]
     Indication: SCIATICA
  6. SPIRONOLACTONE [Concomitant]
     Indication: PRODUCT USED FOR UNKNOWN INDICATION
     Dosage: WATER PILL
  7. CARDIZEM [Concomitant]
     Indication: HYPERTENSION
  8. VENTOLIN HFA [Concomitant]
     Indication: WHEEZING
     Dosage: 90 MCG ONCE; AS REQUIRED
  9. FLUTICASONE PROPIONATE [Concomitant]
     Indication: HYPERSENSITIVITY
     Dosage: 50MG 2 PUFFS IN EACH NOSTRIL EVERY DAY

REACTIONS (4)
  - Rhinorrhoea [Recovering/Resolving]
  - Sneezing [Recovering/Resolving]
  - Cough [Recovering/Resolving]
  - Drug dose omission [Unknown]
